FAERS Safety Report 8357567-0 (Version None)
Quarter: 2012Q2

REPORT INFORMATION
  Report Type: 
  Country: None (occurrence: None)
  Receive Date: 20120514
  Receipt Date: 20100824
  Transmission Date: 20120825
  Serious: Yes (Hospitalization)
  Sender: FDA-Public Use
  Company Number: DE-ROCHE-722229

PATIENT
  Sex: Male
  Weight: 83.1 kg

DRUGS (9)
  1. MABTHERA [Suspect]
     Indication: CHRONIC LYMPHOCYTIC LEUKAEMIA
     Dosage: FORM: INFUSION; LAST DOSE PRIOR TO SAE: 16 AUGUST 2010
     Route: 042
  2. MARCUMAR [Concomitant]
  3. BISOPROLOL FUMARATE [Concomitant]
  4. CHLORAMBUCIL AND CHLORAMBUCIL [Suspect]
     Indication: CHRONIC LYMPHOCYTIC LEUKAEMIA
     Dosage: LAST DOSE PRIOR TO SAE: 16 AUGUST 2010; FREQUENCY: DAY 1 AND DAY 15/ 28 DAYS
     Route: 048
     Dates: start: 20100721, end: 20100901
  5. ENOXAPARIN SODIUM [Concomitant]
  6. DIGITOXIN TAB [Concomitant]
  7. CHLORAMBUCIL AND CHLORAMBUCIL [Suspect]
     Route: 048
  8. ALLOPURINOL [Concomitant]
  9. INSULIN [Concomitant]

REACTIONS (2)
  - DISORIENTATION [None]
  - INFECTION [None]
